FAERS Safety Report 9061467 (Version 1)
Quarter: 2013Q1

REPORT INFORMATION
  Report Type: Spontaneous
  Country: BR (occurrence: BR)
  Receive Date: 20130204
  Receipt Date: 20130204
  Transmission Date: 20140127
  Serious: Yes (Hospitalization, Disabling)
  Sender: FDA-Public Use
  Company Number: BR-ELI_LILLY_AND_COMPANY-BR201301007099

PATIENT
  Sex: Male
  Weight: 63 kg

DRUGS (6)
  1. HUMULIN NPH [Suspect]
     Indication: DIABETES MELLITUS
     Dosage: UNK, TID
     Route: 058
  2. SINVASTATINA [Concomitant]
     Dosage: UNK, UNKNOWN
     Route: 065
  3. NOOTROPIL [Concomitant]
     Dosage: UNK, UNKNOWN
     Route: 065
  4. AMLODIPINE BESYLATE [Concomitant]
     Dosage: UNK, UNKNOWN
     Route: 065
  5. LOSARTAN [Concomitant]
     Dosage: UNK, UNKNOWN
     Route: 065
  6. AAS [Concomitant]
     Dosage: UNK, UNKNOWN
     Route: 065

REACTIONS (2)
  - Cerebrovascular accident [Recovered/Resolved with Sequelae]
  - Aphasia [Not Recovered/Not Resolved]
